FAERS Safety Report 9812366 (Version 3)
Quarter: 2016Q1

REPORT INFORMATION
  Report Type: Report from Study
  Country: US (occurrence: US)
  Receive Date: 20140113
  Receipt Date: 20160210
  Transmission Date: 20160526
  Serious: Yes (Other)
  Sender: FDA-Public Use
  Company Number: US-ROCHE-1332092

PATIENT

DRUGS (3)
  1. RITUXIMAB [Suspect]
     Active Substance: RITUXIMAB
     Indication: CHRONIC LYMPHOCYTIC LEUKAEMIA
     Dosage: THE FIRST DOSE
     Route: 042
  2. RITUXIMAB [Suspect]
     Active Substance: RITUXIMAB
     Route: 042
  3. TRU-016 (ANTI-CD37 MAB) [Suspect]
     Active Substance: INVESTIGATIONAL PRODUCT
     Indication: CHRONIC LYMPHOCYTIC LEUKAEMIA
     Dosage: WEEKLY FOR TWO 28-DAY CYCLES THEN ONCE A MONTH FOR 4 MONTHS.  THE FIRST DOSE WAS 10 MG/KG AND ALL SU
     Route: 042

REACTIONS (13)
  - Pneumonia [Unknown]
  - Hyperkalaemia [Unknown]
  - Deep vein thrombosis [Unknown]
  - Sinusitis [Unknown]
  - Pyrexia [Unknown]
  - Febrile neutropenia [Unknown]
  - Atrial fibrillation [Unknown]
  - Systemic inflammatory response syndrome [Unknown]
  - Small intestinal obstruction [Unknown]
  - Hypertension [Unknown]
  - Neutropenia [Unknown]
  - Infusion related reaction [Unknown]
  - Acute coronary syndrome [Unknown]
